FAERS Safety Report 6337525-8 (Version None)
Quarter: 2009Q3

REPORT INFORMATION
  Report Type: 
  Country: None (occurrence: None)
  Receive Date: 20090901
  Receipt Date: 20090901
  Transmission Date: 20100115
  Serious: Yes (Hospitalization)
  Sender: FDA-Public Use
  Company Number: None

PATIENT
  Sex: Female
  Weight: 92.5338 kg

DRUGS (12)
  1. SUNITINIB 50 MG PER TABLET PFIZER [Suspect]
     Indication: RENAL CELL CARCINOMA
     Dosage: 50MG ONCE DAILY ORAL
     Route: 048
     Dates: start: 20081208, end: 20090830
  2. ERLOTINIB 150 MG PER TABLET GENENTECH/OSI [Suspect]
     Indication: RENAL CELL CARCINOMA
     Dosage: 150MG ONCE DAILY PO
     Route: 048
     Dates: start: 20081208, end: 20090830
  3. CALCIUM + D [Concomitant]
  4. D W/VITAMIN K [Concomitant]
  5. ZYRTEC [Concomitant]
  6. IRON [Concomitant]
  7. LEVOTHYROXINE [Concomitant]
  8. PRILOSEC [Concomitant]
  9. TOPROL-XL [Concomitant]
  10. ASCORBIC ACID [Concomitant]
  11. ZETIA OR [Concomitant]
  12. ZITHROMAX [Concomitant]

REACTIONS (2)
  - CARDIAC FAILURE CONGESTIVE [None]
  - UPPER RESPIRATORY TRACT INFECTION [None]
